FAERS Safety Report 22064165 (Version 4)
Quarter: 2023Q2

REPORT INFORMATION
  Report Type: Report from Study
  Country: ES (occurrence: None)
  Receive Date: 20230306
  Receipt Date: 20230605
  Transmission Date: 20230721
  Serious: Yes (Life-Threatening)
  Sender: FDA-Public Use
  Company Number: ES-ROCHE-2918469

PATIENT
  Age: 60 Year
  Sex: Female
  Weight: 72.7 kg

DRUGS (10)
  1. ATEZOLIZUMAB [Suspect]
     Active Substance: ATEZOLIZUMAB
     Indication: Triple negative breast cancer
     Dosage: ON 22/JUN/2021, RECEIVED MOST RECENT DOSE OF ATEZOLIZUMAB BEFORE EVENT.?DOSE LAST STUDY DRUG ADMIN P
     Route: 041
     Dates: start: 20210119
  2. PACLITAXEL [Suspect]
     Active Substance: PACLITAXEL
     Indication: Triple negative breast cancer
     Dosage: ON 02/SEP/2021, RECEIVED MOST RECENT DOSE 100 MG/M2 OF NAB PACLITAXEL BEFORE EVENT.
     Route: 042
     Dates: start: 20210119
  3. LEVOTHYROXINE SODIUM [Concomitant]
     Active Substance: LEVOTHYROXINE SODIUM
  4. FLUVASTATIN [Concomitant]
     Active Substance: FLUVASTATIN SODIUM
  5. OMEPRAZOLE [Concomitant]
     Active Substance: OMEPRAZOLE
     Indication: Prophylaxis
  6. LORMETAZEPAM [Concomitant]
     Active Substance: LORMETAZEPAM
     Indication: Prophylaxis
  7. LINAGLIPTIN [Concomitant]
     Active Substance: LINAGLIPTIN
     Dates: start: 20210722
  8. SULFAMETHOXAZOLE [Concomitant]
     Active Substance: SULFAMETHOXAZOLE
     Dates: start: 20210825
  9. CARBOPLATIN [Concomitant]
     Active Substance: CARBOPLATIN
     Dates: start: 20211216, end: 20220407
  10. METHYLPREDNISOLONE [Concomitant]
     Active Substance: METHYLPREDNISOLONE
     Route: 048
     Dates: start: 20210730, end: 20220214

REACTIONS (2)
  - Lipase increased [Recovered/Resolved]
  - Alanine aminotransferase increased [Recovered/Resolved]

NARRATIVE: CASE EVENT DATE: 20210608
